FAERS Safety Report 12496951 (Version 1)
Quarter: 2016Q2

REPORT INFORMATION
  Report Type: Spontaneous
  Country: DE (occurrence: DE)
  Receive Date: 20160624
  Receipt Date: 20160624
  Transmission Date: 20160815
  Serious: Yes (Congenital Anomaly)
  Sender: FDA-Public Use
  Company Number: DE-TEVA-670061GER

PATIENT
  Age: 0 Year
  Sex: Male

DRUGS (3)
  1. FEMIBION [Concomitant]
     Active Substance: VITAMINS
     Indication: PROPHYLAXIS OF NEURAL TUBE DEFECT
     Dosage: DOSAGE UNKNOWN
     Route: 064
     Dates: start: 20150520, end: 20151229
  2. LORATADIN [Suspect]
     Active Substance: LORATADINE
     Indication: HYPERSENSITIVITY
     Dosage: 1 DOSAGE FORMS DAILY; 1 TABLET PER DAY, DOSAGE UNKNOWN
     Route: 064
  3. L-THYROXIN [Concomitant]
     Active Substance: LEVOTHYROXINE SODIUM
     Indication: HYPOTHYROIDISM
     Dosage: DOSAGE UNKNOWN
     Route: 064
     Dates: start: 20150330, end: 20151229

REACTIONS (3)
  - Pulmonary artery stenosis [Unknown]
  - Atrial septal defect [Unknown]
  - Foetal exposure during pregnancy [Unknown]
